FAERS Safety Report 5711411-6 (Version None)
Quarter: 2008Q2

REPORT INFORMATION
  Report Type: 
  Country: None (occurrence: None)
  Receive Date: 20080421
  Receipt Date: 20080408
  Transmission Date: 20081010
  Serious: Yes (Other)
  Sender: FDA-Public Use
  Company Number: BR-ROCHE-558019

PATIENT
  Sex: Male
  Weight: 123 kg

DRUGS (2)
  1. RIVOTRIL [Suspect]
     Indication: SEDATION
     Route: 048
     Dates: start: 20050101
  2. DEPAKENE [Concomitant]
     Indication: SEDATION

REACTIONS (1)
  - BLOOD PRESSURE INCREASED [None]
